FAERS Safety Report 18464178 (Version 1)
Quarter: 2020Q4

REPORT INFORMATION
  Report Type: Report from Study
  Country: GB (occurrence: IT)
  Receive Date: 20201104
  Receipt Date: 20201104
  Transmission Date: 20210114
  Serious: Yes (Other)
  Sender: FDA-Public Use
  Company Number: GB-JAZZ-2020-IT-004882

PATIENT
  Age: 45 Year

DRUGS (1)
  1. DEFITELIO [Suspect]
     Active Substance: DEFIBROTIDE SODIUM
     Indication: VENOOCCLUSIVE DISEASE
     Dosage: UNKNOWN DOSE AND FREQUENCY
     Dates: start: 20191104, end: 20191124

REACTIONS (3)
  - Venoocclusive disease [Unknown]
  - Off label use [Unknown]
  - Disease progression [Unknown]
